FAERS Safety Report 9045637 (Version 1)
Quarter: 2013Q1

REPORT INFORMATION
  Report Type: Report from Study
  Country: US (occurrence: US)
  Receive Date: 20130131
  Receipt Date: 20130131
  Transmission Date: 20140127
  Serious: No
  Sender: FDA-Public Use
  Company Number: US-ABBOTT-12P-163-1011575-00

PATIENT
  Age: 74 None
  Sex: Female
  Weight: 101.7 kg

DRUGS (5)
  1. HUMIRA [Suspect]
     Indication: RHEUMATOID ARTHRITIS
     Dates: start: 2011
  2. UNKNOWN INSULIN [Concomitant]
     Indication: DIABETES MELLITUS
  3. PREDNISONE [Concomitant]
     Indication: RHEUMATOID ARTHRITIS
  4. HCTZ [Concomitant]
     Indication: HYPERTENSION
  5. MULTIVITAMIN [Concomitant]
     Indication: SUPPLEMENTATION THERAPY

REACTIONS (1)
  - Back pain [Not Recovered/Not Resolved]
